FAERS Safety Report 24793572 (Version 4)
Quarter: 2025Q3

REPORT INFORMATION
  Report Type: Spontaneous
  Country: US (occurrence: US)
  Receive Date: 20241231
  Receipt Date: 20250801
  Transmission Date: 20251020
  Serious: Yes (Hospitalization, Other)
  Sender: AZURITY PHARMACEUTICALS
  Company Number: US-AZURITY PHARMACEUTICALS, INC.-AZR202409-001420

PATIENT
  Age: 5 Year
  Sex: Female

DRUGS (16)
  1. METHYLPREDNISOLONE ACETATE [Suspect]
     Active Substance: METHYLPREDNISOLONE ACETATE
     Indication: Product used for unknown indication
     Route: 042
  2. ENALAPRIL [Suspect]
     Active Substance: ENALAPRIL
     Indication: Hypertension
     Route: 065
  3. GABAPENTIN [Suspect]
     Active Substance: GABAPENTIN
     Indication: Sedation
     Route: 065
  4. GABAPENTIN [Suspect]
     Active Substance: GABAPENTIN
     Indication: Delirium
  5. AMLODIPINE [Suspect]
     Active Substance: AMLODIPINE BESYLATE
     Indication: Hypertension
     Route: 065
  6. DEXMEDETOMIDINE HYDROCHLORIDE [Suspect]
     Active Substance: DEXMEDETOMIDINE HYDROCHLORIDE
     Indication: Sedation
     Route: 065
  7. DEXMEDETOMIDINE HYDROCHLORIDE [Suspect]
     Active Substance: DEXMEDETOMIDINE HYDROCHLORIDE
     Indication: Delirium
  8. CYCLOSPORINE [Suspect]
     Active Substance: CYCLOSPORINE
     Indication: Juvenile idiopathic arthritis
     Route: 065
     Dates: end: 2020
  9. CYCLOSPORINE [Suspect]
     Active Substance: CYCLOSPORINE
     Indication: Haemophagocytic lymphohistiocytosis
  10. LEVETIRACETAM [Suspect]
     Active Substance: LEVETIRACETAM
     Indication: Seizure
     Route: 065
  11. VALACYCLOVIR HYDROCHLORIDE [Suspect]
     Active Substance: VALACYCLOVIR HYDROCHLORIDE
     Indication: Prophylaxis
     Route: 065
  12. RISPERIDONE\TRIHEXYPHENIDYL HYDROCHLORIDE [Suspect]
     Active Substance: RISPERIDONE\TRIHEXYPHENIDYL HYDROCHLORIDE
     Indication: Sedation
     Route: 065
  13. RISPERIDONE\TRIHEXYPHENIDYL HYDROCHLORIDE [Suspect]
     Active Substance: RISPERIDONE\TRIHEXYPHENIDYL HYDROCHLORIDE
     Indication: Delirium
  14. ANAKINRA [Suspect]
     Active Substance: ANAKINRA
     Indication: Product used for unknown indication
     Dosage: UNK, EVERY 6 HOURS
     Route: 042
  15. ITRACONAZOLE\SECNIDAZOLE [Suspect]
     Active Substance: ITRACONAZOLE\SECNIDAZOLE
     Indication: Prophylaxis
     Route: 065
  16. PENTAMIDINE [Suspect]
     Active Substance: PENTAMIDINE
     Indication: Prophylaxis
     Route: 065

REACTIONS (18)
  - Respiratory failure [Unknown]
  - Still^s disease [Unknown]
  - Pulmonary hypertension [Unknown]
  - Cerebrovascular accident [Unknown]
  - Posterior reversible encephalopathy syndrome [Unknown]
  - Haemophagocytic lymphohistiocytosis [Recovering/Resolving]
  - Interstitial lung disease [Unknown]
  - Intestinal perforation [Unknown]
  - Alpha haemolytic streptococcal infection [Unknown]
  - Diaphragmatic hernia [Unknown]
  - Condition aggravated [Unknown]
  - Pyrexia [Unknown]
  - Serum ferritin increased [Unknown]
  - Inflammatory marker increased [Unknown]
  - Platelet count decreased [Unknown]
  - Treatment failure [Unknown]
  - Drug ineffective [Unknown]
  - Off label use [Unknown]

NARRATIVE: CASE EVENT DATE: 20240209
